FAERS Safety Report 9512509 (Version 1)
Quarter: 2013Q1

REPORT INFORMATION
  Report Type: Spontaneous
  Country: US (occurrence: None)
  Receive Date: 20130305
  Receipt Date: 20130305
  Transmission Date: 20140127
  Serious: Yes (Other)
  Sender: FDA-Public Use
  Company Number: 163-21880-12041326

PATIENT
  Age: 58 Year
  Sex: Female
  Weight: 78.02 kg

DRUGS (13)
  1. REVLIMID (LENALIDOMIDE) (25 MILLIGRAM, CAPSULES) [Suspect]
     Indication: PLASMA CELL MYELOMA
     Dosage: 21 IN 28 D
     Route: 048
     Dates: start: 20100115
  2. VITAMIN C [Concomitant]
  3. ACYCLVIR (ACICLOVIR) (UNKNOWN) [Concomitant]
  4. VELCADE [Concomitant]
  5. DEXAMETHASONE (DEXAMETHASONE) (UNKNOWN) [Concomitant]
  6. AFRIN (AFRIN /OLD FORM/) (SPRAY (NOT INHALATION)) [Concomitant]
  7. COG-10 (UBIDECARENONE) (CAPSULES) [Concomitant]
  8. MULTIPLE VITAMINS (MULTIPLE VITAMINS) (TABLETS) [Concomitant]
  9. PABA (AMENOBENZOIC ACID) (100 MILLIGRAM, TABLETS) [Concomitant]
  10. RESVERATROL (RESVERATROL) (TABLETS) [Concomitant]
  11. SUDAFED (PSEUDOEPHEDRINE HYDROCHLORIDE) (TABLETS) [Concomitant]
  12. VITAMIN A AND D (VITAMIDYNE A AND D) (CAPSULES) [Concomitant]
  13. VITAMIN B COMPLEX (B-KOMPLEX ^LECIVA^) (CAPSULES) [Concomitant]

REACTIONS (4)
  - Drug ineffective [None]
  - Myalgia [None]
  - Full blood count abnormal [None]
  - Plasma cell myeloma [None]
